FAERS Safety Report 13254611 (Version 3)
Quarter: 2018Q3

REPORT INFORMATION
  Report Type: Spontaneous
  Country: FR (occurrence: FR)
  Receive Date: 20170221
  Receipt Date: 20180910
  Transmission Date: 20181010
  Serious: Yes (Death, Other)
  Sender: FDA-Public Use
  Company Number: FR-ALEXION-A201701324

PATIENT
  Age: 38 Year
  Sex: Female

DRUGS (20)
  1. PREDNISONE. [Suspect]
     Active Substance: PREDNISONE
     Indication: SKIN GRAFT
  2. ANTITHYMOCYTE IMMUNOGLOBULIN [Suspect]
     Active Substance: THYMOCYTE IMMUNE GLOBULIN NOS
     Indication: PRODUCT USE IN UNAPPROVED INDICATION
  3. ANTITHYMOCYTE IMMUNOGLOBULIN [Suspect]
     Active Substance: THYMOCYTE IMMUNE GLOBULIN NOS
     Indication: SKIN GRAFT
  4. TACROLIMUS. [Suspect]
     Active Substance: TACROLIMUS
     Indication: PROPHYLAXIS AGAINST TRANSPLANT REJECTION
  5. SIROLIMUS. [Suspect]
     Active Substance: SIROLIMUS
     Indication: IMMUNOSUPPRESSANT DRUG THERAPY
     Dosage: UNK
     Route: 065
  6. MMF [Suspect]
     Active Substance: MYCOPHENOLATE MOFETIL
     Indication: SKIN GRAFT
  7. TACROLIMUS. [Suspect]
     Active Substance: TACROLIMUS
     Indication: IMMUNOSUPPRESSION
     Dosage: 3 MG, QD
     Route: 065
  8. SOLIRIS [Suspect]
     Active Substance: ECULIZUMAB
     Indication: PROPHYLAXIS
  9. MMF [Suspect]
     Active Substance: MYCOPHENOLATE MOFETIL
     Indication: IMMUNOSUPPRESSION
     Dosage: 1.5 G, QD
     Route: 065
  10. MMF [Suspect]
     Active Substance: MYCOPHENOLATE MOFETIL
     Indication: PRODUCT USE IN UNAPPROVED INDICATION
  11. TACROLIMUS. [Suspect]
     Active Substance: TACROLIMUS
     Indication: SKIN GRAFT
  12. PREDNISONE. [Suspect]
     Active Substance: PREDNISONE
     Indication: PROPHYLAXIS AGAINST TRANSPLANT REJECTION
     Dosage: 5 MG, UNK
     Route: 065
  13. ANTITHYMOCYTE IMMUNOGLOBULIN [Suspect]
     Active Substance: THYMOCYTE IMMUNE GLOBULIN NOS
     Indication: IMMUNOSUPPRESSANT DRUG THERAPY
     Dosage: UNK
     Route: 065
  14. SOLIRIS [Suspect]
     Active Substance: ECULIZUMAB
     Indication: TRANSPLANT REJECTION
     Dosage: UNK UNK, QW
     Route: 042
     Dates: start: 201504
  15. SOLIRIS [Suspect]
     Active Substance: ECULIZUMAB
     Indication: OFF LABEL USE
  16. SIROLIMUS. [Suspect]
     Active Substance: SIROLIMUS
     Indication: PRODUCT USE IN UNAPPROVED INDICATION
  17. PREDNISONE. [Suspect]
     Active Substance: PREDNISONE
     Indication: PRODUCT USE IN UNAPPROVED INDICATION
  18. SOLIRIS [Suspect]
     Active Substance: ECULIZUMAB
     Indication: PRODUCT USE IN UNAPPROVED INDICATION
  19. TACROLIMUS. [Suspect]
     Active Substance: TACROLIMUS
     Indication: PRODUCT USE IN UNAPPROVED INDICATION
  20. SIROLIMUS. [Suspect]
     Active Substance: SIROLIMUS
     Indication: SKIN GRAFT

REACTIONS (18)
  - Graft loss [Fatal]
  - Soft tissue disorder [Fatal]
  - Small cell lung cancer recurrent [Fatal]
  - Graft thrombosis [Fatal]
  - Dyskinesia [Fatal]
  - Acute graft versus host disease in skin [Fatal]
  - Oedema [Fatal]
  - Product use in unapproved indication [Fatal]
  - Reperfusion injury [Fatal]
  - Dysarthria [Fatal]
  - Graft ischaemia [Fatal]
  - Rash maculo-papular [Fatal]
  - Off label use [Fatal]
  - Deformity [Fatal]
  - Necrosis [Fatal]
  - Skin necrosis [Fatal]
  - Small cell lung cancer [Fatal]
  - Cyanosis [Fatal]

NARRATIVE: CASE EVENT DATE: 201403
